FAERS Safety Report 7685965-7 (Version None)
Quarter: 2011Q3

REPORT INFORMATION
  Report Type: 
  Country: None (occurrence: None)
  Receive Date: 20110811
  Receipt Date: 20110729
  Transmission Date: 20111222
  Serious: Yes (Hospitalization, Other)
  Sender: FDA-Public Use
  Company Number: AUR-APL-2011-04558

PATIENT
  Age: 80 Year
  Sex: Female

DRUGS (9)
  1. SIMVASTATIN [Concomitant]
  2. ADCAL-D3 (LEKOVITCA) [Concomitant]
  3. AMITRIPTYLINE HCL [Concomitant]
  4. ALENDRONIC ACID (ALENDRONIC ACID) [Suspect]
     Dosage: (70 MG, 1 WK), ORAL
     Route: 048
     Dates: end: 20110510
  5. ZOPICLONE (ZOPICLONE) [Concomitant]
  6. ASPIRIN [Concomitant]
  7. OMEPRAZOLE [Concomitant]
  8. PROPRANOLOL (PROPRANOLL) [Concomitant]
  9. TOLTERODINE TARTRATE [Concomitant]

REACTIONS (3)
  - OESOPHAGEAL STENOSIS [None]
  - ABSCESS JAW [None]
  - OSTEONECROSIS OF JAW [None]
